FAERS Safety Report 6102221-9 (Version None)
Quarter: 2009Q1

REPORT INFORMATION
  Report Type: 
  Country: None (occurrence: None)
  Receive Date: 20090227
  Receipt Date: 20080226
  Transmission Date: 20090719
  Serious: Yes (Other)
  Sender: FDA-Public Use
  Company Number: 549801

PATIENT
  Age: 23 Year
  Sex: Female

DRUGS (1)
  1. ACCUTANE [Suspect]
     Indication: DRUG USE FOR UNKNOWN INDICATION
     Dates: start: 20010101

REACTIONS (7)
  - HYPERVITAMINOSIS [None]
  - MENSTRUATION IRREGULAR [None]
  - NAUSEA [None]
  - PANCREATITIS [None]
  - TACHYCARDIA [None]
  - VASCULITIS [None]
  - VOMITING [None]
